FAERS Safety Report 6203990-X (Version None)
Quarter: 2009Q2

REPORT INFORMATION
  Report Type: 
  Country: None (occurrence: None)
  Receive Date: 20090522
  Receipt Date: 20090515
  Transmission Date: 20091009
  Serious: Yes (Death)
  Sender: FDA-Public Use
  Company Number: KV200900604

PATIENT
  Age: 62 Year
  Sex: Female

DRUGS (1)
  1. MORPHINE SULFATE [Suspect]
     Indication: DRUG USE FOR UNKNOWN INDICATION
     Dosage: 15 MG, ORAL
     Route: 048
     Dates: start: 20080716, end: 20080718

REACTIONS (1)
  - CARDIAC ARREST [None]
